FAERS Safety Report 9822614 (Version 2)
Quarter: 2014Q2

REPORT INFORMATION
  Report Type: Spontaneous
  Country: US (occurrence: US)
  Receive Date: 20140116
  Receipt Date: 20140613
  Transmission Date: 20141212
  Serious: Yes (Other)
  Sender: FDA-Public Use
  Company Number: US-BIOGENIDEC-2014BI002205

PATIENT
  Sex: Female

DRUGS (13)
  1. TYSABRI [Suspect]
     Indication: MULTIPLE SCLEROSIS
     Route: 042
     Dates: start: 20061031
  2. BACLOFEN [Concomitant]
     Indication: PERONEAL NERVE PALSY
     Route: 048
  3. ZANAFLEX [Concomitant]
     Indication: PERONEAL NERVE PALSY
     Route: 048
  4. BOTOX [Concomitant]
     Indication: PERONEAL NERVE PALSY
     Dates: start: 20140401, end: 20140401
  5. BOTOX [Concomitant]
     Indication: PAIN IN EXTREMITY
     Dates: start: 20140401, end: 20140401
  6. BOTOX [Concomitant]
     Indication: PERONEAL NERVE PALSY
  7. BOTOX [Concomitant]
     Indication: PAIN IN EXTREMITY
  8. AMPYRA [Concomitant]
     Route: 048
  9. CELEXA [Concomitant]
     Indication: ANXIETY
     Route: 048
  10. CELEXA [Concomitant]
     Indication: DEPRESSION
     Route: 048
  11. DESYREL [Concomitant]
     Indication: INSOMNIA
     Route: 048
  12. FLONASE [Concomitant]
     Route: 045
  13. SYMMETREL [Concomitant]
     Route: 048

REACTIONS (1)
  - Breast cancer [Not Recovered/Not Resolved]
